FAERS Safety Report 8318109-9 (Version None)
Quarter: 2012Q2

REPORT INFORMATION
  Report Type: 
  Country: None (occurrence: None)
  Receive Date: 20120427
  Receipt Date: 20120418
  Transmission Date: 20120825
  Serious: Yes (Congenital Anomaly, Other)
  Sender: FDA-Public Use
  Company Number: DE-RANBAXY-2012RR-55821

PATIENT
  Sex: Male
  Weight: 3.04 kg

DRUGS (8)
  1. RENNIE [Concomitant]
     Dosage: UNK
     Route: 064
  2. ZOLPIDEM [Concomitant]
     Dosage: 3 TIMES, UNKNOWN DOSAGE
     Route: 064
  3. FLUOXETINE [Suspect]
     Dosage: 20 (MG/D (-10)) TILL WK 12:20 MG/D, THEN 10 MG/D
     Route: 064
     Dates: start: 20100130, end: 20100817
  4. MOVICOL [Concomitant]
     Dosage: UNK
     Route: 064
  5. FOLSAURE [Concomitant]
     Dosage: 0.4 MG/DAY
     Route: 064
  6. LEVOTHYROXINE SODIUM [Concomitant]
     Dosage: 50 UG/DAY
     Route: 064
  7. VALIUM [Concomitant]
     Dosage: 0.5 (MG/DAY) THREE TIMES AT THE END OF JULY
     Route: 064
  8. SEDACUR [Concomitant]
     Dosage: UNK
     Route: 064

REACTIONS (1)
  - TRANSPOSITION OF THE GREAT VESSELS [None]
